FAERS Safety Report 8093778-X (Version None)
Quarter: 2012Q1

REPORT INFORMATION
  Report Type: 
  Country: None (occurrence: None)
  Receive Date: 20120131
  Receipt Date: 20120117
  Transmission Date: 20120608
  Serious: Yes (Other)
  Sender: FDA-Public Use
  Company Number: FR-CELGENEUS-056-21880-11100123

PATIENT
  Age: 63 Year
  Sex: Male
  Weight: 60 kg

DRUGS (6)
  1. DEXAMETHASONE [Concomitant]
     Indication: MULTIPLE MYELOMA
     Dosage: 20 MILLIGRAM
     Route: 065
     Dates: start: 20110510
  2. REVLIMID [Suspect]
     Indication: MULTIPLE MYELOMA
     Dosage: 25 MILLIGRAM
     Route: 048
     Dates: start: 20110510, end: 20110715
  3. DURAGESIC-100 [Concomitant]
     Dosage: 250 MICROGRAM
     Route: 065
     Dates: start: 20060101
  4. NEXIUM [Concomitant]
     Dosage: 40 MILLIGRAM
     Route: 065
     Dates: start: 20090101
  5. LYRICA [Concomitant]
     Dosage: 100 MILLIGRAM
     Route: 065
     Dates: start: 20110101
  6. VALACYCLOVIR HYDROCHLORIDE [Concomitant]
     Dosage: 1000 MILLIGRAM
     Route: 065
     Dates: start: 20110101

REACTIONS (2)
  - MYELODYSPLASTIC SYNDROME [None]
  - BONE MARROW FAILURE [None]
